FAERS Safety Report 7243807-8 (Version None)
Quarter: 2011Q1

REPORT INFORMATION
  Report Type: 
  Country: None (occurrence: None)
  Receive Date: 20110125
  Receipt Date: 20110111
  Transmission Date: 20110831
  Serious: Yes (Hospitalization, Other)
  Sender: FDA-Public Use
  Company Number: PHHY2011GB02966

PATIENT
  Age: 76 Year
  Sex: Male

DRUGS (11)
  1. SUSCARD [Concomitant]
     Dosage: UNK
  2. ENOXAPARIN [Concomitant]
     Dosage: UNK
  3. CLOPIDOGREL [Concomitant]
     Dosage: UNK
  4. BETA BLOCKING AGENTS [Concomitant]
     Route: 048
  5. LONG ACTING NITRATE [Concomitant]
     Route: 048
  6. 5-FLUOROURACIL [Suspect]
     Indication: RECTAL CANCER
     Dosage: 4 CYCLES OF WEEKLY BOLUS
     Route: 040
  7. CAPECITABINE [Concomitant]
     Dosage: UNK
     Route: 048
  8. FOLINIC ACID [Concomitant]
     Indication: RECTAL CANCER
     Route: 040
  9. VERAPAMIL [Concomitant]
     Indication: SUPRAVENTRICULAR TACHYARRHYTHMIA
     Dosage: UNK
  10. ASPIRIN [Concomitant]
     Dosage: UNK
  11. AMLODIPINE [Concomitant]
     Dosage: UNK

REACTIONS (8)
  - ANGINA PECTORIS [None]
  - CORONARY ARTERY DISEASE [None]
  - CHEST PAIN [None]
  - ELECTROCARDIOGRAM ST SEGMENT ELEVATION [None]
  - FEMORAL NECK FRACTURE [None]
  - TROPONIN T INCREASED [None]
  - ARTERIOSPASM CORONARY [None]
  - ELECTROCARDIOGRAM T WAVE ABNORMAL [None]
